FAERS Safety Report 8951444 (Version 1)
Quarter: 2012Q4

REPORT INFORMATION
  Report Type: Spontaneous
  Country: GB (occurrence: None)
  Receive Date: 20121129
  Receipt Date: 20121129
  Transmission Date: 20130627
  Serious: Yes (Other)
  Sender: FDA-Public Use
  Company Number: AUR-APL-2012-05009

PATIENT
  Age: 78 Year
  Sex: Male

DRUGS (5)
  1. AMOXICILLIN (AMOXICILLIN) [Suspect]
     Indication: INFECTION NOS
  2. TRIMETHOPRIM [Suspect]
     Indication: URINARY INFECTION
     Dates: start: 201112
  3. BISOPROLOL [Concomitant]
  4. LANSOPRAZOLE [Concomitant]
  5. WARFARIN [Concomitant]

REACTIONS (4)
  - Hallucination [None]
  - Confusional state [None]
  - Lethargy [None]
  - Incontinence [None]
